FAERS Safety Report 7464934-6 (Version None)
Quarter: 2011Q2

REPORT INFORMATION
  Report Type: 
  Country: None (occurrence: None)
  Receive Date: 20110509
  Receipt Date: 20110428
  Transmission Date: 20111010
  Serious: Yes (Hospitalization)
  Sender: FDA-Public Use
  Company Number: GB-ASTRAZENECA-2010SE16954

PATIENT
  Age: 28268 Day
  Sex: Male
  Weight: 83 kg

DRUGS (8)
  1. LOVAZA [Concomitant]
     Indication: PROPHYLAXIS
     Dosage: 1 CAPSULE DAILY
     Route: 048
     Dates: start: 20000701
  2. BISOPROLOL [Concomitant]
     Indication: ATRIAL FIBRILLATION
     Route: 048
     Dates: start: 19960701
  3. WARFARIN [Concomitant]
     Indication: ATRIAL FIBRILLATION
     Route: 048
     Dates: start: 19960701
  4. DOXAZOCIN [Concomitant]
     Indication: HYPERTENSION
     Route: 048
     Dates: start: 19850715
  5. DIGOXIN [Concomitant]
     Indication: ATRIAL FIBRILLATION
     Route: 048
     Dates: start: 19960701
  6. ZD4054 [Suspect]
     Indication: PROSTATE CANCER
     Route: 048
     Dates: start: 20100324, end: 20100405
  7. CANDESARTAN [Concomitant]
     Indication: HYPERTENSION
     Route: 048
     Dates: start: 20000701
  8. BENDROFLUMETHIAZIDE [Concomitant]
     Indication: ATRIAL FIBRILLATION
     Route: 048
     Dates: start: 20050701, end: 20100405

REACTIONS (3)
  - FLUID RETENTION [None]
  - PLEURAL EFFUSION [None]
  - HYPONATRAEMIA [None]
